FAERS Safety Report 5413026-6 (Version None)
Quarter: 2007Q3

REPORT INFORMATION
  Report Type: 
  Country: None (occurrence: None)
  Receive Date: 20070713
  Receipt Date: 20070425
  Transmission Date: 20080115
  Serious: No
  Sender: FDA-Public Use
  Company Number: 2005SP001416

PATIENT
  Age: 80 Year
  Sex: Female
  Weight: 47.6277 kg

DRUGS (1)
  1. LUNESTA [Suspect]
     Indication: INSOMNIA
     Dosage: 1 MG; HS; ORAL
     Route: 048
     Dates: start: 20050614, end: 20050101

REACTIONS (6)
  - DRUG INEFFECTIVE [None]
  - DRY MOUTH [None]
  - DYSGEUSIA [None]
  - INSOMNIA [None]
  - NAUSEA [None]
  - STOMACH DISCOMFORT [None]
